FAERS Safety Report 25832344 (Version 1)
Quarter: 2025Q3

REPORT INFORMATION
  Report Type: Spontaneous
  Country: EU (occurrence: EU)
  Receive Date: 20250922
  Receipt Date: 20250922
  Transmission Date: 20251021
  Serious: Yes (Hospitalization, Other)
  Sender: SANOFI AVENTIS
  Company Number: None

PATIENT
  Age: 81 Year
  Sex: Male
  Weight: 89.2 kg

DRUGS (4)
  1. PLAVIX [Suspect]
     Active Substance: CLOPIDOGREL BISULFATE
     Indication: Aortic stenosis
     Dosage: 75 MG, QD
     Route: 048
     Dates: start: 20250223
  2. CEFTRIAXONE SODIUM [Suspect]
     Active Substance: CEFTRIAXONE SODIUM
     Indication: Pneumonia
     Dosage: 1 DF, QD
     Route: 042
     Dates: start: 20250226, end: 20250305
  3. EPLERENONE [Suspect]
     Active Substance: EPLERENONE
     Indication: Disease risk factor
     Dosage: 25 MG, QD
     Route: 048
     Dates: start: 20250303
  4. BENSERAZIDE HYDROCHLORIDE\LEVODOPA [Suspect]
     Active Substance: BENSERAZIDE HYDROCHLORIDE\LEVODOPA
     Indication: Tremor
     Dosage: 65.5 MG, QD
     Route: 048
     Dates: start: 20250303, end: 20250310

REACTIONS (3)
  - Agranulocytosis [Recovering/Resolving]
  - Eosinophilia [Recovered/Resolved]
  - Rash [Recovering/Resolving]

NARRATIVE: CASE EVENT DATE: 20250304
